FAERS Safety Report 4379400-4 (Version None)
Quarter: 2004Q2

REPORT INFORMATION
  Report Type: 
  Country: None (occurrence: None)
  Receive Date: 20040617
  Receipt Date: 20030917
  Transmission Date: 20050107
  Serious: Yes (Life-Threatening)
  Sender: FDA-Public Use
  Company Number: PHBS2003GR10019

PATIENT
  Age: 4 Day
  Sex: Female

DRUGS (1)
  1. TEGRETOL [Suspect]
     Route: 064

REACTIONS (3)
  - CONGENITAL APLASTIC ANAEMIA [None]
  - DRUG EXPOSURE DURING PREGNANCY [None]
  - GROWTH RETARDATION [None]
